FAERS Safety Report 23608385 (Version 3)
Quarter: 2024Q4

REPORT INFORMATION
  Report Type: Report from Study
  Country: CA (occurrence: CA)
  Receive Date: 20240307
  Receipt Date: 20241112
  Transmission Date: 20250115
  Serious: Yes (Other)
  Sender: GENMAB
  Company Number: CA-GENMAB-2024-00737

PATIENT
  Age: 73 Year
  Sex: Male
  Weight: 89 kg

DRUGS (1)
  1. EPCORITAMAB [Suspect]
     Active Substance: EPCORITAMAB
     Indication: Diffuse large B-cell lymphoma
     Dosage: 48 MG/0.8 ML VIAL, EVERY 1 WEEKS
     Route: 058
     Dates: start: 20240109, end: 20240228

REACTIONS (3)
  - Diffuse large B-cell lymphoma [Not Recovered/Not Resolved]
  - Abdominal mass [Unknown]
  - Abdominal pain [Not Recovered/Not Resolved]

NARRATIVE: CASE EVENT DATE: 20240101
